FAERS Safety Report 4801287-3 (Version None)
Quarter: 2005Q4

REPORT INFORMATION
  Report Type: 
  Country: None (occurrence: None)
  Receive Date: 20051011
  Receipt Date: 20050926
  Transmission Date: 20060501
  Serious: Yes (Death)
  Sender: FDA-Public Use
  Company Number: WAES 0509USA00868

PATIENT
  Age: 74 Year
  Sex: Male

DRUGS (6)
  1. COZAAR [Suspect]
     Indication: HYPERTENSION
     Dosage: SEE IMAGE, PO
     Route: 048
     Dates: start: 20010321, end: 20030106
  2. COZAAR [Suspect]
     Indication: HYPERTENSION
     Dosage: SEE IMAGE, PO
     Route: 048
     Dates: start: 20030107, end: 20050303
  3. LENDORMIN [Concomitant]
  4. NORVASC [Concomitant]
  5. OMEPRAL [Concomitant]
  6. URINORM [Concomitant]

REACTIONS (1)
  - DEATH [None]
